FAERS Safety Report 8880739 (Version 2)
Quarter: 2013Q1

REPORT INFORMATION
  Report Type: Spontaneous
  Country: AU (occurrence: AU)
  Receive Date: 20121101
  Receipt Date: 20130103
  Transmission Date: 20140127
  Serious: Yes (Hospitalization)
  Sender: FDA-Public Use
  Company Number: AU-CELGENEUS-008-20785-12102706

PATIENT
  Age: 66 Year
  Sex: Female

DRUGS (2)
  1. THALOMID [Suspect]
     Indication: PLASMA CELL MYELOMA
     Dosage: 100 MILLIGRAM
     Route: 048
  2. THALOMID [Suspect]
     Dosage: 150 MILLIGRAM
     Route: 048

REACTIONS (1)
  - Skin ulcer [Unknown]
